FAERS Safety Report 6877558-6 (Version None)
Quarter: 2010Q3

REPORT INFORMATION
  Report Type: 
  Country: None (occurrence: None)
  Receive Date: 20100727
  Receipt Date: 20100326
  Transmission Date: 20110219
  Serious: No
  Sender: FDA-Public Use
  Company Number: US-ABBOTT-10P-163-0630126-00

PATIENT
  Age: 79 Year
  Sex: Female

DRUGS (2)
  1. SYNTHROID [Suspect]
     Indication: HYPOTHYROIDISM
     Dosage: 6MOS 50
     Route: 048
     Dates: start: 19980101, end: 20090901
  2. SYNTHROID [Suspect]
     Route: 048
     Dates: start: 20090901

REACTIONS (3)
  - DEPRESSION [None]
  - FOOD ALLERGY [None]
  - NASOPHARYNGITIS [None]
